FAERS Safety Report 4602012-1 (Version None)
Quarter: 2005Q2

REPORT INFORMATION
  Report Type: 
  Country: None (occurrence: None)
  Receive Date: 20050215
  Receipt Date: 20041025
  Transmission Date: 20051028
  Serious: Yes (Hospitalization)
  Sender: FDA-Public Use
  Company Number: 384313

PATIENT
  Age: 45 Year
  Sex: Male

DRUGS (3)
  1. PEGASYS [Suspect]
     Indication: HEPATITIS C
     Dosage: 180 MCG 1 PER WEEK SUBCUTANEOUS
     Route: 058
     Dates: start: 20041015
  2. RIBASPHERE [Suspect]
     Indication: HEPATITIS C
     Dosage: 600 MG 2 PER DAY ORAL
     Route: 048
     Dates: start: 20041015
  3. TYLENOL PM (ACETAMINOPHEN/DIPHENHYDRAMINE HYDROCHLORIDE) [Concomitant]

REACTIONS (4)
  - HYPOTENSION [None]
  - LIP DISCOLOURATION [None]
  - LOSS OF CONSCIOUSNESS [None]
  - NAUSEA [None]
